FAERS Safety Report 8344338-4 (Version None)
Quarter: 2012Q2

REPORT INFORMATION
  Report Type: 
  Country: None (occurrence: None)
  Receive Date: 20120508
  Receipt Date: 20120427
  Transmission Date: 20120825
  Serious: No
  Sender: FDA-Public Use
  Company Number: BR-ROCHE-1063028

PATIENT
  Age: 6 Year
  Sex: Male

DRUGS (3)
  1. ACTEMRA [Suspect]
     Indication: JUVENILE ARTHRITIS
     Dates: start: 20111201
  2. METHOTREXATE [Interacting]
     Indication: JUVENILE ARTHRITIS
     Dates: start: 20111201
  3. LEFLUNOMIDE [Interacting]
     Indication: JUVENILE ARTHRITIS
     Dates: start: 20111201

REACTIONS (3)
  - DRUG INTERACTION [None]
  - TRANSAMINASES INCREASED [None]
  - ARTHRITIS [None]
